FAERS Safety Report 5050493-4 (Version None)
Quarter: 2006Q3

REPORT INFORMATION
  Report Type: 
  Country: None (occurrence: None)
  Receive Date: 20060707
  Receipt Date: 20060621
  Transmission Date: 20061208
  Serious: Yes (Congenital Anomaly)
  Sender: FDA-Public Use
  Company Number: 6023615

PATIENT
  Sex: Female

DRUGS (1)
  1. METHIMAZOLE [Suspect]
     Indication: BASEDOW'S DISEASE
     Dosage: 10,000 MG (10 MG, 1 IN 1 D) TRANSPLACENTAL      MATERNAL USE
     Route: 064

REACTIONS (10)
  - APLASIA [None]
  - CHOANAL ATRESIA [None]
  - CONGENITAL GENITOURINARY ABNORMALITY [None]
  - DRUG EXPOSURE DURING PREGNANCY [None]
  - EYELID DISORDER [None]
  - HYPERTONIA NEONATAL [None]
  - PILONIDAL CYST [None]
  - PREMATURE BABY [None]
  - SKULL MALFORMATION [None]
  - UMBILICAL HERNIA [None]
